FAERS Safety Report 18775600 (Version 1)
Quarter: 2021Q1

REPORT INFORMATION
  Report Type: Spontaneous
  Country: CN (occurrence: CN)
  Receive Date: 20210122
  Receipt Date: 20210122
  Transmission Date: 20210419
  Serious: Yes (Hospitalization, Other)
  Sender: FDA-Public Use
  Company Number: CN-ALKEM LABORATORIES LIMITED-CN-ALKEM-2021-00177

PATIENT
  Age: 29 Year
  Sex: Female

DRUGS (12)
  1. AMINO ACIDS [Concomitant]
     Active Substance: AMINO ACIDS, SOURCE UNSPECIFIED
     Indication: NUTRITIONAL SUPPLEMENTATION
     Dosage: 200 MILLILITER
     Route: 065
     Dates: start: 20200517
  2. VITAMIN C [Concomitant]
     Active Substance: ASCORBIC ACID
     Indication: HAEMOSTASIS
     Dosage: 2 GRAM
     Route: 065
     Dates: start: 20200517
  3. CEFUROXIME AXETIL. [Suspect]
     Active Substance: CEFUROXIME AXETIL
     Dosage: 0.75 GRAM (1 TOTAL)
     Route: 042
     Dates: start: 20200517, end: 202005
  4. MORPHINE SULFATE. [Suspect]
     Active Substance: MORPHINE SULFATE
     Indication: ANALGESIC THERAPY
     Dosage: 7 MILLIGRAM
     Route: 008
     Dates: start: 20200517, end: 202005
  5. VITAMIN C [Concomitant]
     Active Substance: ASCORBIC ACID
     Indication: INFLAMMATION
  6. CEFUROXIME AXETIL. [Suspect]
     Active Substance: CEFUROXIME AXETIL
     Indication: ANTIBIOTIC PROPHYLAXIS
     Dosage: UNK
     Route: 042
     Dates: start: 20200517
  7. OXYTOCIN. [Concomitant]
     Active Substance: OXYTOCIN
     Indication: MUSCLE CONTRACTURE
     Dosage: 20 INTERNATIONAL UNIT
     Route: 065
     Dates: start: 20200517
  8. UBIDECARENONE, SODIUM CHLORIDE [Concomitant]
     Indication: INFLAMMATION
     Dosage: 250 MILLILITER
     Route: 065
     Dates: start: 20200517
  9. UBIDECARENONE, SODIUM CHLORIDE [Concomitant]
     Indication: HAEMOSTASIS
  10. CARPROST AMINOBUTANOL [Concomitant]
     Indication: HAEMORRHAGE
     Dosage: 250 GRAM
     Route: 030
     Dates: start: 20200517
  11. ROPIVACAINE HYDROCHLORIDE. [Concomitant]
     Active Substance: ROPIVACAINE HYDROCHLORIDE
     Indication: PRODUCT USED FOR UNKNOWN INDICATION
     Dosage: UNK
     Route: 065
     Dates: start: 20200517
  12. CEFUROXIME AXETIL. [Suspect]
     Active Substance: CEFUROXIME AXETIL
     Dosage: UNK

REACTIONS (4)
  - Pruritus [Recovered/Resolved]
  - Hypersensitivity [Recovered/Resolved]
  - Maternal exposure during delivery [Unknown]
  - Drug eruption [Recovered/Resolved]

NARRATIVE: CASE EVENT DATE: 20200517
